FAERS Safety Report 5083004-8 (Version None)
Quarter: 2006Q3

REPORT INFORMATION
  Report Type: 
  Country: None (occurrence: None)
  Receive Date: 20060814
  Receipt Date: 20060804
  Transmission Date: 20061208
  Serious: Yes (Other)
  Sender: FDA-Public Use
  Company Number: TCI2006A01976

PATIENT
  Age: 69 Year
  Sex: Male

DRUGS (6)
  1. ACTOS [Suspect]
     Indication: DIABETES MELLITUS
     Dosage: 30 MG (30 MG, 1 IN 1 D) PER ORAL
     Route: 048
     Dates: start: 20051227, end: 20060501
  2. GLUFAST (MITIGLINIDE CALCIUM HYDRATE) [Concomitant]
  3. AMARYL [Concomitant]
  4. FLIVAS (NAFTOPIDIL) [Concomitant]
  5. MAGMITT (MAGNESIUM OXIDE) [Concomitant]
  6. PRORENAL (LIMAPROST) [Concomitant]

REACTIONS (6)
  - IMPAIRED WORK ABILITY [None]
  - MALAISE [None]
  - REFUSAL OF TREATMENT BY PATIENT [None]
  - RHABDOMYOLYSIS [None]
  - SENSATION OF HEAVINESS [None]
  - VISION BLURRED [None]
